FAERS Safety Report 20762207 (Version 3)
Quarter: 2023Q2

REPORT INFORMATION
  Report Type: Other
  Country: CA (occurrence: CA)
  Receive Date: 20220428
  Receipt Date: 20230622
  Transmission Date: 20230721
  Serious: Yes (Hospitalization, Other)
  Sender: FDA-Public Use
  Company Number: CA-CELLTRION INC.-2022CA005107

PATIENT

DRUGS (6)
  1. RITUXIMAB [Suspect]
     Active Substance: RITUXIMAB
     Indication: Glomerulonephritis minimal lesion
     Dosage: UNK
     Route: 042
  2. RITUXIMAB [Suspect]
     Active Substance: RITUXIMAB
     Dosage: UNK
     Route: 041
  3. RITUXIMAB [Suspect]
     Active Substance: RITUXIMAB
     Indication: Glomerulonephritis minimal lesion
     Dosage: 1000 MG
     Route: 042
  4. CANDESARTAN [Concomitant]
     Active Substance: CANDESARTAN
     Route: 065
  5. PREDNISONE [Concomitant]
     Active Substance: PREDNISONE
  6. RIFAMPIN [Concomitant]
     Active Substance: RIFAMPIN

REACTIONS (10)
  - Ear congestion [Unknown]
  - Pericardial effusion [Unknown]
  - Angioedema [Unknown]
  - Dyspnoea [Unknown]
  - Fluid retention [Unknown]
  - Insomnia [Unknown]
  - Nasal congestion [Unknown]
  - Pulmonary oedema [Unknown]
  - Off label use [Unknown]
  - Intentional product use issue [Unknown]
